FAERS Safety Report 10141546 (Version 3)
Quarter: 2014Q3

REPORT INFORMATION
  Report Type: Spontaneous
  Country: US (occurrence: US)
  Receive Date: 20140429
  Receipt Date: 20140808
  Transmission Date: 20150326
  Serious: Yes (Hospitalization)
  Sender: FDA-Public Use
  Company Number: US-GLAXOSMITHKLINE-A1071233A

PATIENT
  Age: 60 Year
  Sex: Male

DRUGS (13)
  1. SPIRIVA [Concomitant]
     Active Substance: TIOTROPIUM BROMIDE MONOHYDRATE
  2. LOVASTATIN. [Concomitant]
     Active Substance: LOVASTATIN
  3. RADIATION THERAPY [Suspect]
     Active Substance: RADIATION THERAPY
     Indication: MESOTHELIOMA
     Route: 065
     Dates: start: 20140313
  4. POTASSIUM [Concomitant]
     Active Substance: POTASSIUM
  5. ALLOPURINOL. [Concomitant]
     Active Substance: ALLOPURINOL
  6. WATER PILL [Concomitant]
     Active Substance: UNSPECIFIED INGREDIENT
  7. LORAZEPAM. [Concomitant]
     Active Substance: LORAZEPAM
  8. VITAMIN D3 [Concomitant]
     Active Substance: CHOLECALCIFEROL
  9. ADVAIR HFA [Suspect]
     Active Substance: FLUTICASONE PROPIONATE\SALMETEROL XINAFOATE
     Indication: DYSPNOEA
     Dosage: 1PUFF TWICE PER DAY
     Route: 055
  10. ANTIDEPRESSANT [Concomitant]
     Active Substance: UNSPECIFIED INGREDIENT
  11. COUMADIN [Concomitant]
     Active Substance: WARFARIN SODIUM
  12. BLOOD PRESSURE MEDICATION [Concomitant]
     Active Substance: UNSPECIFIED INGREDIENT
  13. UNKNOWN MEDICATION [Concomitant]
     Active Substance: UNSPECIFIED INGREDIENT

REACTIONS (14)
  - Fatigue [Not Recovered/Not Resolved]
  - Tumour necrosis [Unknown]
  - Chest wall mass [Unknown]
  - Pulmonary mass [Not Recovered/Not Resolved]
  - Surgery [Unknown]
  - Debridement [Unknown]
  - Atelectasis [Unknown]
  - Malignant neoplasm of pleura [Unknown]
  - Post procedural infection [Unknown]
  - Weight increased [Not Recovered/Not Resolved]
  - Bronchopleural fistula [Unknown]
  - Muscle atrophy [Unknown]
  - Procedural complication [Unknown]
  - Tumour excision [Unknown]

NARRATIVE: CASE EVENT DATE: 2005
